FAERS Safety Report 4366868-2 (Version None)
Quarter: 2004Q2

REPORT INFORMATION
  Report Type: 
  Country: None (occurrence: None)
  Receive Date: 20040526
  Receipt Date: 20040526
  Transmission Date: 20050107
  Serious: No
  Sender: FDA-Public Use
  Company Number: None

PATIENT
  Age: 63 Year
  Sex: Male

DRUGS (4)
  1. SINEMET CR [Suspect]
     Indication: PARKINSON'S DISEASE
     Dosage: 6 TS PO QD
     Route: 047
     Dates: start: 19940401, end: 20040520
  2. PERGOLIDE MESYLATE [Concomitant]
  3. COMTAN [Concomitant]
  4. AMBIEN [Concomitant]

REACTIONS (1)
  - DRUG EFFECT DECREASED [None]
